FAERS Safety Report 15838558 (Version 1)
Quarter: 2019Q1

REPORT INFORMATION
  Report Type: Spontaneous
  Country: TR (occurrence: TR)
  Receive Date: 20190117
  Receipt Date: 20190117
  Transmission Date: 20190417
  Serious: Yes (Other)
  Sender: FDA-Public Use
  Company Number: TR-BAYER-2019-013191

PATIENT
  Sex: Female

DRUGS (4)
  1. ADEMPAS [Suspect]
     Active Substance: RIOCIGUAT
     Dosage: UNK
  2. VENTAVIS [Suspect]
     Active Substance: ILOPROST
     Dosage: UNK
  3. ADEMPAS [Suspect]
     Active Substance: RIOCIGUAT
     Dosage: UNK
  4. VENTAVIS [Suspect]
     Active Substance: ILOPROST
     Dosage: UNK

REACTIONS (2)
  - Pneumonia [None]
  - Blood bilirubin increased [Recovered/Resolved]
